FAERS Safety Report 15944121 (Version 2)
Quarter: 2019Q1

REPORT INFORMATION
  Report Type: Report from Study
  Country: RO (occurrence: RO)
  Receive Date: 20190211
  Receipt Date: 20190221
  Transmission Date: 20190417
  Serious: Yes (Hospitalization)
  Sender: FDA-Public Use
  Company Number: RO-AMGEN-ROUNI2019019498

PATIENT
  Age: 74 Year
  Weight: 85 kg

DRUGS (5)
  1. LENALIDOMIDE [Concomitant]
     Active Substance: LENALIDOMIDE
     Indication: PLASMA CELL MYELOMA
     Dosage: UNK
  2. DEXAMETHASONE. [Concomitant]
     Active Substance: DEXAMETHASONE
     Indication: PLASMA CELL MYELOMA
     Dosage: 20 MG, UNK
     Dates: start: 20181115, end: 20190218
  3. CARFILZOMIB [Suspect]
     Active Substance: CARFILZOMIB
     Indication: PLASMA CELL MYELOMA
     Dosage: 105 MG, UNK
     Route: 042
     Dates: start: 20181115
  4. ACICLOVIR [Concomitant]
     Active Substance: ACYCLOVIR
     Dosage: 400 MG, UNK
     Dates: start: 20181115
  5. BONEFOS [Concomitant]
     Active Substance: CLODRONATE DISODIUM
     Dosage: 1600 MG, UNK
     Dates: start: 20181115

REACTIONS (1)
  - Bronchial obstruction [Recovered/Resolved]

NARRATIVE: CASE EVENT DATE: 20181205
